FAERS Safety Report 7634547-1 (Version None)
Quarter: 2011Q3

REPORT INFORMATION
  Report Type: 
  Country: None (occurrence: None)
  Receive Date: 20110725
  Receipt Date: 20100823
  Transmission Date: 20111222
  Serious: Yes (Hospitalization)
  Sender: FDA-Public Use
  Company Number: US-BAYER-201031430NA

PATIENT
  Age: 96 Year
  Sex: Male

DRUGS (1)
  1. AVELOX [Suspect]
     Indication: ANTIBIOTIC THERAPY
     Dosage: 400 MG (DAILY DOSE), QD, ORAL
     Route: 048

REACTIONS (1)
  - PANCYTOPENIA [None]
